FAERS Safety Report 5788558-1 (Version None)
Quarter: 2008Q2

REPORT INFORMATION
  Report Type: 
  Country: None (occurrence: None)
  Receive Date: 20080626
  Receipt Date: 20080613
  Transmission Date: 20081010
  Serious: Yes (Hospitalization)
  Sender: FDA-Public Use
  Company Number: DE-ELI_LILLY_AND_COMPANY-DE200806003258

PATIENT
  Age: 69 Year
  Sex: Female

DRUGS (8)
  1. ZYPREXA [Suspect]
     Dosage: 2.5 MG, DAILY (1/D)
     Route: 048
     Dates: start: 20080201, end: 20080403
  2. RISPERDAL [Concomitant]
     Dosage: 0.5 MG, DAILY (1/D)
     Route: 048
     Dates: start: 20080403, end: 20080404
  3. MIRTAZAPINE [Concomitant]
     Dosage: 45 MG, DAILY (1/D)
     Route: 048
     Dates: start: 20060601, end: 20080402
  4. MIRTAZAPINE [Concomitant]
     Dosage: 60 MG, DAILY (1/D)
     Route: 048
     Dates: start: 20080403
  5. FALITHROM [Concomitant]
     Dosage: 3 MG, AS NEEDED
     Route: 048
     Dates: start: 20080101
  6. SIMVAHEXAL [Concomitant]
     Dosage: 40 MG, DAILY (1/D)
     Route: 048
  7. RAMIPRIL [Concomitant]
     Dosage: 5 MG, DAILY (1/D)
     Route: 048
  8. BELOC ZOK [Concomitant]
     Dosage: 95 MG, DAILY (1/D)
     Route: 048

REACTIONS (1)
  - PLEUROTHOTONUS [None]
